FAERS Safety Report 9163890 (Version 1)
Quarter: 2013Q1

REPORT INFORMATION
  Report Type: Spontaneous
  Country: US (occurrence: US)
  Receive Date: 20130314
  Receipt Date: 20130314
  Transmission Date: 20140127
  Serious: Yes (Hospitalization, Other)
  Sender: FDA-Public Use
  Company Number: US-BAXTER-2013BAX009166

PATIENT
  Age: 68 Year
  Sex: Female

DRUGS (1)
  1. STERILE WATER [Suspect]
     Indication: SURGERY

REACTIONS (4)
  - Electrolyte imbalance [Recovered/Resolved]
  - Bladder perforation [Recovered/Resolved]
  - Musculoskeletal pain [None]
  - Chest pain [None]
